FAERS Safety Report 11233760 (Version 3)
Quarter: 2016Q1

REPORT INFORMATION
  Report Type: Spontaneous
  Country: CA (occurrence: CA)
  Receive Date: 20150702
  Receipt Date: 20160113
  Transmission Date: 20160525
  Serious: Yes (Other)
  Sender: FDA-Public Use
  Company Number: CA-ROCHE-1602539

PATIENT
  Age: 34 Year
  Sex: Male

DRUGS (5)
  1. BIAXIN [Concomitant]
     Active Substance: CLARITHROMYCIN
  2. XOLAIR [Suspect]
     Active Substance: OMALIZUMAB
     Route: 058
     Dates: start: 20150528
  3. SYMBICORT [Concomitant]
     Active Substance: BUDESONIDE\FORMOTEROL FUMARATE DIHYDRATE
  4. XOLAIR [Suspect]
     Active Substance: OMALIZUMAB
     Indication: ASTHMA
     Route: 058
     Dates: start: 20140917
  5. XOLAIR [Suspect]
     Active Substance: OMALIZUMAB
     Route: 058
     Dates: start: 20141016

REACTIONS (8)
  - Fatigue [Recovering/Resolving]
  - Feeling hot [Unknown]
  - Headache [Recovering/Resolving]
  - Sinusitis [Unknown]
  - Respiratory tract infection [Unknown]
  - Photopsia [Unknown]
  - Pyrexia [Unknown]
  - Nasopharyngitis [Unknown]

NARRATIVE: CASE EVENT DATE: 20140917
